FAERS Safety Report 24038920 (Version 1)
Quarter: 2024Q3

REPORT INFORMATION
  Report Type: Spontaneous
  Country: KR (occurrence: KR)
  Receive Date: 20240702
  Receipt Date: 20240702
  Transmission Date: 20241017
  Serious: Yes (Other)
  Sender: UCB
  Company Number: KR-UCBSA-2024032415

PATIENT

DRUGS (3)
  1. LEVETIRACETAM [Suspect]
     Active Substance: LEVETIRACETAM
     Indication: Generalised tonic-clonic seizure
     Dosage: UNK
     Route: 064
  2. LORAZEPAM [Suspect]
     Active Substance: LORAZEPAM
     Indication: Generalised tonic-clonic seizure
     Dosage: UNK
     Route: 064
  3. MAGNESIUM SULFATE [Suspect]
     Active Substance: MAGNESIUM SULFATE\MAGNESIUM SULFATE HEPTAHYDRATE
     Indication: Generalised tonic-clonic seizure
     Dosage: UNK
     Route: 064

REACTIONS (3)
  - Premature baby [Unknown]
  - Cyanosis [Unknown]
  - Maternal exposure during pregnancy [Unknown]
